FAERS Safety Report 5536674-1 (Version None)
Quarter: 2007Q4

REPORT INFORMATION
  Report Type: 
  Country: None (occurrence: None)
  Receive Date: 20071204
  Receipt Date: 20071119
  Transmission Date: 20080405
  Serious: Yes (Life-Threatening)
  Sender: FDA-Public Use
  Company Number: 2007S1012087

PATIENT
  Age: 67 Year
  Sex: Male
  Weight: 70 kg

DRUGS (8)
  1. CITALOPRAM HYDROBROMIDE [Suspect]
     Indication: DEPRESSION
     Dosage: 40 MG;DAILY
  2. DICLOFENAC (DICLOFENAC) [Suspect]
     Indication: PAIN
     Dosage: 75 MG;TWICE A DAY
  3. ASPIRIN [Suspect]
     Indication: MYOCARDIAL INFARCTION
     Dosage: 75 MG;DAILY
  4. AMLODIPINE [Concomitant]
  5. ATORVASTATIN [Concomitant]
  6. ISOSORBIDE MONONITRATE [Concomitant]
  7. QVAR 40 [Concomitant]
  8. ALBUTEROL [Concomitant]

REACTIONS (6)
  - ACUTE CORONARY SYNDROME [None]
  - CARDIAC DISORDER [None]
  - CONDITION AGGRAVATED [None]
  - HAEMOGLOBIN DECREASED [None]
  - MELAENA [None]
  - TROPONIN INCREASED [None]
